FAERS Safety Report 7307227-X (Version None)
Quarter: 2011Q1

REPORT INFORMATION
  Report Type: 
  Country: None (occurrence: None)
  Receive Date: 20110223
  Receipt Date: 20110215
  Transmission Date: 20110831
  Serious: Yes (Other)
  Sender: FDA-Public Use
  Company Number: US-PFIZER INC-2010150018

PATIENT
  Sex: Female
  Weight: 65.76 kg

DRUGS (3)
  1. LORAZEPAM [Concomitant]
     Dosage: UNK
  2. LEVOTHYROXINE [Concomitant]
     Indication: HYPOTHYROIDISM
     Dosage: UNK
  3. LYRICA [Suspect]
     Indication: FIBROMYALGIA
     Dosage: 225 MG, 2X/DAY
     Route: 048
     Dates: start: 20080808

REACTIONS (2)
  - WEIGHT INCREASED [None]
  - INCREASED APPETITE [None]
